FAERS Safety Report 18374425 (Version 1)
Quarter: 2020Q4

REPORT INFORMATION
  Report Type: Spontaneous
  Country: DE (occurrence: DE)
  Receive Date: 20201012
  Receipt Date: 20201012
  Transmission Date: 20210114
  Serious: Yes (Hospitalization)
  Sender: FDA-Public Use
  Company Number: NVSC2020DE238464

PATIENT
  Age: 66 Year
  Sex: Female
  Weight: 48 kg

DRUGS (10)
  1. ONDASETRON [Concomitant]
     Active Substance: ONDANSETRON
     Indication: PRODUCT USED FOR UNKNOWN INDICATION
     Dosage: 8 MG
     Route: 048
     Dates: start: 20200805
  2. METOPROLOL. [Concomitant]
     Active Substance: METOPROLOL
     Indication: HYPERTENSION
     Dosage: 47.5 MG (ONGOING)
     Route: 048
  3. PACLITAXEL. [Suspect]
     Active Substance: PACLITAXEL
     Indication: NON-SMALL CELL LUNG CANCER
     Dosage: DOSE:200 MG/M^2 FREQUENCY: PER CYCLE,CYCLICALON 04/AUG/2020, RECEIVED MOST RECENT DOSE PRIOR TO SAE
     Route: 042
     Dates: start: 20200714
  4. ATEZOLIZUMAB. [Suspect]
     Active Substance: ATEZOLIZUMAB
     Indication: NON-SMALL CELL LUNG CANCER
     Dosage: 1200 MG (CYCLICAL ON 04 AUG 2020, RECEIVED MOST RECENT DOSE PRIOR TO SAE)
     Route: 042
     Dates: start: 20200714
  5. CARBOPLATIN. [Suspect]
     Active Substance: CARBOPLATIN
     Indication: NON-SMALL CELL LUNG CANCER
     Dosage: DOSE: 6 MG/MIN*ML; FREQUENCY: PER CYCLEON 04/AUG/2020, RECEIVED MOST RECENT DOSE PRIOR TO SAE
     Route: 042
     Dates: start: 20200714
  6. METOCLOPRAMIDE. [Concomitant]
     Active Substance: METOCLOPRAMIDE
     Indication: PRODUCT USED FOR UNKNOWN INDICATION
     Dosage: 10 MG (ONGOING)
     Route: 048
     Dates: start: 20200805
  7. BEVACIZUMAB. [Suspect]
     Active Substance: BEVACIZUMAB
     Indication: NON-SMALL CELL LUNG CANCER
     Dosage: 15 MG/KG (CYCLICAL ON 04 AUG 2020, RECEIVED MOST RECENT DOSE PRIOR TO ADVERSE EVENTS)
     Route: 042
     Dates: start: 20200714
  8. PANTOPRAZOLE [Concomitant]
     Active Substance: PANTOPRAZOLE
     Indication: PRODUCT USED FOR UNKNOWN INDICATION
     Dosage: 20 MG (ONGOING)
     Route: 048
  9. LEVOTHYROXINE. [Concomitant]
     Active Substance: LEVOTHYROXINE
     Indication: POST PROCEDURAL HYPOTHYROIDISM
     Dosage: 100 UG (ONGOING)
     Route: 048
     Dates: start: 20190101
  10. TENSOFLUX [Concomitant]
     Indication: HYPERTENSION
     Dosage: 2.5 MG (ONGOING)
     Route: 048

REACTIONS (3)
  - Neutropenia [Recovered/Resolved]
  - Leukopenia [Recovered/Resolved]
  - Leukopenia [Recovered/Resolved]

NARRATIVE: CASE EVENT DATE: 20200811
